FAERS Safety Report 14382382 (Version 1)
Quarter: 2018Q1

REPORT INFORMATION
  Report Type: Spontaneous
  Country: US (occurrence: US)
  Receive Date: 20180112
  Receipt Date: 20180112
  Transmission Date: 20180509
  Serious: No
  Sender: FDA-Public Use
  Company Number: US-PERRIGO-17US030041

PATIENT
  Age: 55 Year
  Sex: Female
  Weight: 70.75 kg

DRUGS (3)
  1. IBUPROFEN. [Suspect]
     Active Substance: IBUPROFEN
     Dosage: UNKNOWN, QD
     Route: 048
     Dates: start: 201711, end: 20171103
  2. IBUPROFEN. [Suspect]
     Active Substance: IBUPROFEN
     Indication: HEADACHE
     Dosage: 400 MG, QD
     Route: 048
     Dates: end: 201711
  3. NAPROXEN SODIUM. [Suspect]
     Active Substance: NAPROXEN SODIUM
     Indication: ACCIDENTAL EXPOSURE TO PRODUCT
     Dosage: UKNOWN, QD
     Route: 048
     Dates: start: 201711, end: 20171103

REACTIONS (3)
  - Feeling abnormal [Recovered/Resolved]
  - Incorrect drug administration duration [Recovered/Resolved]
  - Accidental exposure to product [Recovered/Resolved]

NARRATIVE: CASE EVENT DATE: 201711
